FAERS Safety Report 17791133 (Version 3)
Quarter: 2021Q3

REPORT INFORMATION
  Report Type: Report from Study
  Country: CO (occurrence: CO)
  Receive Date: 20200514
  Receipt Date: 20210921
  Transmission Date: 20211014
  Serious: Yes (Hospitalization)
  Sender: FDA-Public Use
  Company Number: CO-INCYTE CORPORATION-2020IN004356

PATIENT

DRUGS (2)
  1. JAKAVI [Suspect]
     Active Substance: RUXOLITINIB
     Dosage: UNK
     Route: 065
  2. JAKAVI [Suspect]
     Active Substance: RUXOLITINIB
     Indication: MYELOFIBROSIS
     Dosage: 15 MG, Q12H
     Route: 048
     Dates: start: 20190918

REACTIONS (8)
  - Bacterial infection [Unknown]
  - Weight decreased [Unknown]
  - Anxiety [Unknown]
  - Pyrexia [Unknown]
  - Disease recurrence [Unknown]
  - Splenomegaly [Unknown]
  - Malaise [Unknown]
  - Pain [Unknown]
